FAERS Safety Report 17620615 (Version 8)
Quarter: 2021Q3

REPORT INFORMATION
  Report Type: Report from Study
  Country: KR (occurrence: KR)
  Receive Date: 20200403
  Receipt Date: 20210901
  Transmission Date: 20211014
  Serious: Yes (Hospitalization)
  Sender: FDA-Public Use
  Company Number: NVSC2020KR088568

PATIENT
  Age: 52 Year
  Sex: Female
  Weight: 63 kg

DRUGS (18)
  1. ESOMEPRAZOLE SODIUM. [Concomitant]
     Active Substance: ESOMEPRAZOLE SODIUM
     Indication: GASTROOESOPHAGEAL REFLUX PROPHYLAXIS
     Dosage: UNK
     Route: 065
     Dates: start: 20200326, end: 20200326
  2. FRESH FROZEN PLASMA [Concomitant]
     Active Substance: HUMAN PLASMA
     Indication: TRANSFUSION
     Dosage: UNK
     Route: 065
     Dates: start: 20200326, end: 20200326
  3. ASCORBIC ACID. [Concomitant]
     Active Substance: ASCORBIC ACID
     Indication: NUTRITIONAL CONDITION ABNORMAL
     Dosage: 100 MG, UNKNOWN
     Route: 065
     Dates: start: 20200326, end: 20200326
  4. PAMISOL [Concomitant]
     Active Substance: PAMIDRONATE DISODIUM
     Indication: NUTRITIONAL CONDITION ABNORMAL
     Dosage: 500 ML
     Route: 065
     Dates: start: 20200326, end: 20200326
  5. CEFOTAXIME SODIUM [Concomitant]
     Active Substance: CEFOTAXIME SODIUM
     Indication: PNEUMOPERITONEUM
     Dosage: UNK
     Route: 065
     Dates: start: 20200326, end: 20200327
  6. LACTOBACILLUS [Concomitant]
     Active Substance: LACTOBACILLUS ACIDOPHILUS
     Indication: CROHN^S DISEASE
     Dosage: 300 MG
     Route: 065
     Dates: start: 20200311, end: 20200325
  7. BESZYME [Concomitant]
     Indication: CROHN^S DISEASE
     Dosage: UNK
     Route: 065
     Dates: start: 20200311, end: 20200325
  8. CHLORPHENIRAMINE MALEATE. [Concomitant]
     Active Substance: CHLORPHENIRAMINE MALEATE
     Indication: COMPUTERISED TOMOGRAM ABDOMEN
     Dosage: UNK
     Route: 065
     Dates: start: 20200326, end: 20200326
  9. METRONIDAZOLE. [Concomitant]
     Active Substance: METRONIDAZOLE
     Indication: CROHN^S DISEASE
     Dosage: 500 MG, UNKNOWN
     Route: 065
     Dates: start: 20200326, end: 20200327
  10. SMOFKABIVEN PERIPHERAL [Concomitant]
     Indication: NUTRITIONAL CONDITION ABNORMAL
     Dosage: UNK
     Route: 065
     Dates: start: 20200326, end: 20200326
  11. SECUKINUMAB. [Suspect]
     Active Substance: SECUKINUMAB
     Indication: ANKYLOSING SPONDYLITIS
     Dosage: UNK
     Route: 058
     Dates: start: 20190207, end: 20200305
  12. NORMAL SALINE [Concomitant]
     Active Substance: SODIUM CHLORIDE
     Indication: NUTRITIONAL SUPPLEMENTATION
     Dosage: UNK
     Route: 065
     Dates: start: 20200326, end: 20200327
  13. PROPOFOL. [Concomitant]
     Active Substance: PROPOFOL
     Indication: ENDOSCOPY
     Dosage: UNK
     Route: 065
     Dates: start: 20200316, end: 20200316
  14. POLYBUTIN S.R [Concomitant]
     Indication: CROHN^S DISEASE
     Dosage: UNK
     Route: 065
     Dates: start: 20200311, end: 20200325
  15. NORMAL SALINE [Concomitant]
     Active Substance: SODIUM CHLORIDE
     Indication: COMPUTERISED TOMOGRAM
     Dosage: UNK
     Route: 065
     Dates: start: 20200326, end: 20200326
  16. TAMIPOOL [Concomitant]
     Active Substance: VITAMINS
     Indication: NUTRITIONAL CONDITION ABNORMAL
     Dosage: UNK
     Route: 065
     Dates: start: 20200326, end: 20200326
  17. TIROPA [Concomitant]
     Active Substance: TIROPRAMIDE
     Indication: CROHN^S DISEASE
     Dosage: 100 MG
     Route: 065
     Dates: start: 20200311, end: 20200325
  18. CAFSOL [Concomitant]
     Indication: CROHN^S DISEASE
     Dosage: 10 %
     Route: 065
     Dates: start: 20200311, end: 20200311

REACTIONS (1)
  - Large intestine perforation [Not Recovered/Not Resolved]

NARRATIVE: CASE EVENT DATE: 20200326
